FAERS Safety Report 6594895-3 (Version None)
Quarter: 2010Q1

REPORT INFORMATION
  Report Type: 
  Country: None (occurrence: None)
  Receive Date: 20100222
  Receipt Date: 20100210
  Transmission Date: 20100710
  Serious: Yes (Hospitalization, Disabling)
  Sender: FDA-Public Use
  Company Number: FR-PFIZER INC-2010005192

PATIENT
  Age: 66 Year
  Sex: Female

DRUGS (6)
  1. SOLU-MEDROL [Suspect]
     Indication: RHEUMATOID ARTHRITIS
     Dosage: 500 MG, 1X/DAY
     Route: 040
     Dates: start: 20090128, end: 20090130
  2. IMUREL [Suspect]
     Indication: ANTISYNTHETASE SYNDROME
     Dosage: 50 MG, 2X/DAY
     Route: 048
     Dates: start: 20090407, end: 20090505
  3. ALTIM [Suspect]
     Dosage: 0.0286 DF EVERY 5 WEEKS
     Route: 014
     Dates: start: 20090526, end: 20090703
  4. CORTANCYL [Suspect]
     Indication: RHEUMATOID ARTHRITIS
     Dosage: 15 MG, 1X/DAY
     Route: 048
     Dates: start: 20090201
  5. PLAQUENIL [Suspect]
     Indication: ANTISYNTHETASE SYNDROME
     Dosage: 200 MG, 2X/DAY
     Route: 048
     Dates: start: 20080701, end: 20090801
  6. ZOLEDRONIC ACID [Suspect]
     Dosage: 5 MG, SINGLE
     Route: 042
     Dates: start: 20090130, end: 20090130

REACTIONS (13)
  - ABSCESS [None]
  - BLOOD CREATININE INCREASED [None]
  - BLOOD SODIUM DECREASED [None]
  - DISSEMINATED TUBERCULOSIS [None]
  - DYSCALCULIA [None]
  - DYSGRAPHIA [None]
  - DYSPRAXIA [None]
  - FATIGUE [None]
  - HEADACHE [None]
  - JC VIRUS TEST POSITIVE [None]
  - JOINT TUBERCULOSIS [None]
  - PROGRESSIVE MULTIFOCAL LEUKOENCEPHALOPATHY [None]
  - TUBERCULOSIS [None]
